FAERS Safety Report 24358836 (Version 1)
Quarter: 2024Q3

REPORT INFORMATION
  Report Type: Report from Study
  Country: US (occurrence: US)
  Receive Date: 20240924
  Receipt Date: 20240924
  Transmission Date: 20241017
  Serious: No
  Sender: PAREXEL
  Company Number: US-Stemline Therapeutics, Inc.-2024ST003764

PATIENT

DRUGS (1)
  1. ORSERDU [Suspect]
     Active Substance: ELACESTRANT
     Indication: Breast cancer female
     Dosage: 345 MG, DAILY
     Route: 048
     Dates: start: 20240529

REACTIONS (10)
  - Abdominal distension [Unknown]
  - Ageusia [Not Recovered/Not Resolved]
  - Product dose omission issue [Unknown]
  - Fall [Unknown]
  - Contusion [Unknown]
  - Ligament sprain [Unknown]
  - Nausea [Unknown]
  - Decreased appetite [Unknown]
  - Dyspepsia [Recovering/Resolving]
  - Energy increased [Unknown]
